FAERS Safety Report 9941038 (Version 1)
Quarter: 2014Q1

REPORT INFORMATION
  Report Type: Report from Study
  Country: US (occurrence: US)
  Receive Date: 20140303
  Receipt Date: 20140303
  Transmission Date: 20141002
  Serious: No
  Sender: FDA-Public Use
  Company Number: US-ABBVIE-13P-163-1041580-00

PATIENT
  Age: 57 Year
  Sex: Female

DRUGS (5)
  1. HUMIRA [Suspect]
     Indication: CROHN^S DISEASE
  2. VESICARE [Concomitant]
     Indication: INCONTINENCE
  3. DEXILANT [Concomitant]
     Indication: GASTROOESOPHAGEAL REFLUX DISEASE
  4. CHOLESTYRAMINE [Concomitant]
     Indication: CROHN^S DISEASE
     Dosage: POWDER MIDX WITH LIQUID
  5. ATENOLOL [Concomitant]
     Indication: HYPERTENSION

REACTIONS (3)
  - Amnesia [Not Recovered/Not Resolved]
  - Fatigue [Not Recovered/Not Resolved]
  - Poor quality sleep [Not Recovered/Not Resolved]
